FAERS Safety Report 23568181 (Version 1)
Quarter: 2024Q1

REPORT INFORMATION
  Report Type: Spontaneous
  Country: US (occurrence: US)
  Receive Date: 20240226
  Receipt Date: 20240226
  Transmission Date: 20240410
  Serious: No
  Sender: FDA-Public Use
  Company Number: AP-2023-US-5609

PATIENT
  Sex: Female

DRUGS (1)
  1. CROMOLYN SODIUM [Suspect]
     Active Substance: CROMOLYN SODIUM
     Indication: Gastrointestinal disorder
     Dosage: 2 AMPULES A DAY
     Route: 048

REACTIONS (1)
  - Product dose omission issue [Unknown]
